FAERS Safety Report 16629336 (Version 1)
Quarter: 2019Q3

REPORT INFORMATION
  Report Type: Spontaneous
  Country: FR (occurrence: FR)
  Receive Date: 20190725
  Receipt Date: 20190725
  Transmission Date: 20191004
  Serious: Yes (Other)
  Sender: FDA-Public Use
  Company Number: FR-GLAXOSMITHKLINE-FR2019GSK134798

PATIENT
  Sex: Female

DRUGS (2)
  1. NICOPATCH [Suspect]
     Active Substance: NICOTINE
     Indication: SMOKING CESSATION THERAPY
     Dosage: 1 DF, QD (1/DAY)  (14 MG/24 H)
     Route: 062
  2. NICOTINE. [Suspect]
     Active Substance: NICOTINE
     Indication: SMOKING CESSATION THERAPY
     Dosage: 1 DF, 1D (14 MG/24 H)
     Route: 062

REACTIONS (4)
  - Nicotine dependence [Unknown]
  - Product adhesion issue [Unknown]
  - Intentional product use issue [Unknown]
  - Drug ineffective [Unknown]
